FAERS Safety Report 13435930 (Version 1)
Quarter: 2017Q2

REPORT INFORMATION
  Report Type: Spontaneous
  Country: US (occurrence: US)
  Receive Date: 20170413
  Receipt Date: 20170413
  Transmission Date: 20170830
  Serious: Yes (Hospitalization, Other)
  Sender: FDA-Public Use
  Company Number: US-PFIZER INC-2017149730

PATIENT
  Age: 55 Year
  Sex: Male
  Weight: 64.41 kg

DRUGS (2)
  1. GLIPIZIDE. [Suspect]
     Active Substance: GLIPIZIDE
     Indication: DIABETES MELLITUS
     Dosage: UNK, (STARTED GLIPIZIDE ABOUT 18 MONTHS AGO, STOP ABOUT 6 MONTHS AGO)
     Dates: start: 201506
  2. LORATADINE. [Concomitant]
     Active Substance: LORATADINE
     Indication: HYPERSENSITIVITY
     Dosage: UNK, DAILY (EVERYDAY)

REACTIONS (13)
  - Dyspnoea [Recovering/Resolving]
  - Pneumonia [Recovering/Resolving]
  - Asthenia [Recovering/Resolving]
  - Feeling abnormal [Recovering/Resolving]
  - Spermatozoa abnormal [Recovering/Resolving]
  - Accident [Recovering/Resolving]
  - Abnormal dreams [Recovering/Resolving]
  - Apparent death [Recovering/Resolving]
  - Inflammation [Recovering/Resolving]
  - Decreased appetite [Recovering/Resolving]
  - Pyrexia [Not Recovered/Not Resolved]
  - Myocardial infarction [Unknown]
  - Loss of consciousness [Recovering/Resolving]

NARRATIVE: CASE EVENT DATE: 2016
